FAERS Safety Report 6306369-5 (Version None)
Quarter: 2009Q3

REPORT INFORMATION
  Report Type: 
  Country: None (occurrence: None)
  Receive Date: 20090812
  Receipt Date: 20090730
  Transmission Date: 20100115
  Serious: Yes (Other)
  Sender: FDA-Public Use
  Company Number: FI-AVENTIS-200914511EU

PATIENT
  Age: 69 Year
  Sex: Female
  Weight: 64 kg

DRUGS (10)
  1. ENOXAPARIN SODIUM [Suspect]
     Indication: THROMBOSIS PROPHYLAXIS
     Route: 058
     Dates: start: 20090127, end: 20090131
  2. KLEXANE                            /01708202/ [Concomitant]
  3. RINGER ACETATE [Concomitant]
  4. GELOFUSINE                         /00523001/ [Concomitant]
  5. NORMOSTERIL                        /01686801/ [Concomitant]
  6. ACETAMINOPHEN [Concomitant]
  7. OXYCONTIN [Concomitant]
  8. EFFORTIL [Concomitant]
  9. ATROPINE [Concomitant]
  10. ONDANSETRON [Concomitant]

REACTIONS (1)
  - HEPATIC ENZYME INCREASED [None]
